FAERS Safety Report 11976474 (Version 1)
Quarter: 2016Q1

REPORT INFORMATION
  Report Type: Spontaneous
  Country: US (occurrence: US)
  Receive Date: 20160129
  Receipt Date: 20160129
  Transmission Date: 20160526
  Serious: Yes (Hospitalization, Other)
  Sender: FDA-Public Use
  Company Number: US-ELI_LILLY_AND_COMPANY-US201601007982

PATIENT
  Sex: Male

DRUGS (2)
  1. EFFIENT [Suspect]
     Active Substance: PRASUGREL HYDROCHLORIDE
     Indication: STENT PLACEMENT
     Dosage: 60 MG, SINGLE
     Dates: start: 20160120, end: 20160120
  2. ANGIOMAX [Suspect]
     Active Substance: BIVALIRUDIN
     Indication: STENT PLACEMENT
     Dosage: UNK
     Route: 065
     Dates: start: 20160120

REACTIONS (2)
  - Vascular stent occlusion [Unknown]
  - Acute myocardial infarction [Unknown]
